FAERS Safety Report 6826243-5 (Version None)
Quarter: 2010Q3

REPORT INFORMATION
  Report Type: 
  Country: None (occurrence: None)
  Receive Date: 20100709
  Receipt Date: 20100625
  Transmission Date: 20110219
  Serious: Yes (Other)
  Sender: FDA-Public Use
  Company Number: PHHY2010US41989

PATIENT
  Sex: Female
  Weight: 97 kg

DRUGS (2)
  1. RECLAST [Suspect]
     Dosage: UNK
     Dates: start: 20100201
  2. XANAX [Concomitant]

REACTIONS (9)
  - ABDOMINAL DISCOMFORT [None]
  - ARTHRALGIA [None]
  - ASTHENIA [None]
  - FEELING ABNORMAL [None]
  - GAIT DISTURBANCE [None]
  - MYALGIA [None]
  - PAIN IN JAW [None]
  - PARALYSIS [None]
  - TOOTHACHE [None]
